FAERS Safety Report 18618268 (Version 1)
Quarter: 2020Q4

REPORT INFORMATION
  Report Type: Spontaneous
  Country: DE (occurrence: DE)
  Receive Date: 20201215
  Receipt Date: 20201215
  Transmission Date: 20210114
  Serious: Yes (Other)
  Sender: FDA-Public Use
  Company Number: DE-ASTRAZENECA-2020SF64029

PATIENT
  Age: 67 Year
  Sex: Male

DRUGS (4)
  1. TIOTROPIUM BROMIDE-1-WATER RESPIMAT [Concomitant]
     Dosage: 2.0DF UNKNOWN
     Dates: start: 20150224
  2. SYMBICORT [Suspect]
     Active Substance: BUDESONIDE\FORMOTEROL FUMARATE DIHYDRATE
     Dosage: 320/9 UG, 3X2 DOSES, CHANGING BETWEEN 2X1 TO 6X2 DOSES, UNKNOWN FREQUENCY, UP TO 12 DOSES PER DAY...
     Route: 055
  3. FENOTEROL HYDROBROMIDE [Concomitant]
     Active Substance: FENOTEROL HYDROBROMIDE
     Dosage: AS NEEDED
  4. SYMBICORT [Suspect]
     Active Substance: BUDESONIDE\FORMOTEROL FUMARATE DIHYDRATE
     Dosage: 320/9 UG, 3X2 DOSES, CHANGING BETWEEN 2X1 TO 6X2 DOSES, UNKNOWN FREQUENCY UNKNOWN
     Route: 055

REACTIONS (5)
  - Off label use [Recovered/Resolved]
  - Productive cough [Recovered/Resolved]
  - Exercise tolerance decreased [Recovered/Resolved]
  - Asthma [Recovered/Resolved]
  - Dyspnoea exertional [Recovered/Resolved]
